FAERS Safety Report 16449025 (Version 6)
Quarter: 2019Q3

REPORT INFORMATION
  Report Type: Spontaneous
  Country: JP (occurrence: JP)
  Receive Date: 20190619
  Receipt Date: 20190930
  Transmission Date: 20191004
  Serious: Yes (Hospitalization, Other)
  Sender: FDA-Public Use
  Company Number: JP-009507513-1811JPN000257J

PATIENT
  Age: 75 Year
  Sex: Male
  Weight: 47 kg

DRUGS (13)
  1. BEZAFIBRATE [Suspect]
     Active Substance: BEZAFIBRATE
     Dosage: 200 MILLIGRAM, BID
     Route: 048
     Dates: end: 20181015
  2. NEXIUM [Concomitant]
     Active Substance: ESOMEPRAZOLE MAGNESIUM
     Dosage: 20 MILLIGRAM, QD
     Route: 048
     Dates: start: 20180817
  3. CALONAL [Concomitant]
     Active Substance: ACETAMINOPHEN
     Dosage: 100 MILLIGRAM, QID
     Route: 048
     Dates: start: 20180817, end: 20181018
  4. BISOPROLOL FUMARATE. [Concomitant]
     Active Substance: BISOPROLOL FUMARATE
     Dosage: 0.625 MILLIGRAM, BID
     Route: 048
  5. OXINORM [Concomitant]
     Dosage: 2.5 MILLIGRAM
     Route: 048
     Dates: start: 20180921, end: 20181015
  6. VALSARTAN. [Concomitant]
     Active Substance: VALSARTAN
     Dosage: 80 MILLIGRAM, QD
     Route: 048
  7. TAPENTA [Concomitant]
     Active Substance: TAPENTADOL HYDROCHLORIDE
     Dosage: 25 MILLIGRAM, BID
     Route: 048
     Dates: start: 20180928, end: 20181116
  8. EDIROL [Concomitant]
     Active Substance: ELDECALCITOL
     Dosage: 0.75 MICROGRAM, QD
     Route: 048
     Dates: end: 20181026
  9. FAMOTIDINE D [Concomitant]
     Active Substance: FAMOTIDINE
     Dosage: 10 MILLIGRAM, QD
     Route: 048
     Dates: end: 20181026
  10. KEYTRUDA [Suspect]
     Active Substance: PEMBROLIZUMAB
     Indication: LUNG ADENOCARCINOMA
     Dosage: 200 MILLIGRAM, Q3W
     Route: 041
     Dates: start: 20180920, end: 20181012
  11. CELECOX [Concomitant]
     Active Substance: CELECOXIB
     Dosage: 100 MILLIGRAM, BID
     Route: 048
     Dates: start: 20180817, end: 20181025
  12. CODEINE PHOSPHATE HYDRATE [Concomitant]
     Active Substance: CODEINE PHOSPHATE
     Dosage: 2 GRAM
     Route: 048
     Dates: start: 20180824
  13. MUCOSAL-L [Concomitant]
     Dosage: 45 MILLIGRAM, QD
     Route: 048
     Dates: end: 20181026

REACTIONS (5)
  - Pneumonia [Unknown]
  - Liver disorder [Not Recovered/Not Resolved]
  - Infection [Unknown]
  - Cardiac failure [Recovered/Resolved]
  - Myositis [Not Recovered/Not Resolved]

NARRATIVE: CASE EVENT DATE: 20181012
